FAERS Safety Report 6340718-7 (Version None)
Quarter: 2009Q3

REPORT INFORMATION
  Report Type: 
  Country: None (occurrence: None)
  Receive Date: 20090904
  Receipt Date: 20090831
  Transmission Date: 20100115
  Serious: Yes (Other)
  Sender: FDA-Public Use
  Company Number: BR-BRISTOL-MYERS SQUIBB COMPANY-14122600

PATIENT
  Age: 65 Year
  Sex: Female

DRUGS (5)
  1. ORENCIA [Suspect]
     Indication: RHEUMATOID ARTHRITIS
     Dosage: FIRST INFUSION 500MG
     Route: 042
     Dates: start: 20080124, end: 20080731
  2. ORENCIA [Suspect]
     Indication: VASCULITIS
     Dosage: FIRST INFUSION 500MG
     Route: 042
     Dates: start: 20080124, end: 20080731
  3. CELEBRA [Suspect]
  4. ARAVA [Suspect]
  5. METICORTEN [Suspect]

REACTIONS (1)
  - RENAL FAILURE [None]
